FAERS Safety Report 4728983-0 (Version None)
Quarter: 2005Q3

REPORT INFORMATION
  Report Type: 
  Country: None (occurrence: None)
  Receive Date: 20050729
  Receipt Date: 20041215
  Transmission Date: 20060218
  Serious: No
  Sender: FDA-Public Use
  Company Number: US-GLAXOSMITHKLINE-A0537459A

PATIENT
  Age: 55 Year
  Sex: Male

DRUGS (5)
  1. IMITREX [Suspect]
     Indication: MIGRAINE
     Dosage: 50MG AS REQUIRED
     Route: 048
     Dates: start: 20041101
  2. TOPROL-XL [Concomitant]
  3. ZOLOFT [Concomitant]
  4. TYLENOL [Concomitant]
  5. ANTIHYPERTENSIVE [Concomitant]

REACTIONS (1)
  - DRUG INTERACTION [None]
